FAERS Safety Report 4766137-2 (Version None)
Quarter: 2005Q3

REPORT INFORMATION
  Report Type: 
  Country: None (occurrence: None)
  Receive Date: 20050912
  Receipt Date: 20050322
  Transmission Date: 20060218
  Serious: Yes (Death, Hospitalization)
  Sender: FDA-Public Use
  Company Number: US-MERCK-0503USA04215

PATIENT
  Age: 64 Year
  Sex: Female
  Weight: 91 kg

DRUGS (16)
  1. VIOXX [Suspect]
     Indication: ARTHRALGIA
     Route: 048
     Dates: start: 19990101, end: 20030322
  2. NYSTATIN [Concomitant]
     Route: 048
  3. POTASSIUM (UNSPECIFIED) [Concomitant]
     Route: 048
  4. LOMOTIL [Concomitant]
     Route: 048
  5. ZYRTEC [Concomitant]
     Route: 048
  6. COUMADIN [Concomitant]
     Route: 048
     Dates: start: 19950510, end: 20030322
  7. ASPIRIN [Concomitant]
     Indication: PROPHYLAXIS
     Route: 048
     Dates: start: 19980101, end: 20030322
  8. LORTAB [Concomitant]
     Indication: PAIN
     Route: 048
     Dates: start: 19970101, end: 20030322
  9. CORTISONE (CORTISONE ACETATE) [Concomitant]
     Indication: PAIN
     Route: 051
     Dates: start: 19970101, end: 20030322
  10. PERCOCET [Concomitant]
     Indication: PAIN
     Route: 048
     Dates: start: 19970101, end: 20030322
  11. DARVOCET-N 100 [Concomitant]
     Indication: PAIN
     Route: 048
     Dates: start: 19970101, end: 20030322
  12. TYLENOL W/ CODEINE [Concomitant]
     Indication: PAIN
     Route: 048
     Dates: start: 19970101, end: 20030322
  13. IBUPROFEN [Concomitant]
     Indication: PAIN
     Route: 048
     Dates: start: 19970101, end: 20030322
  14. NEURONTIN [Concomitant]
     Indication: ARTHRALGIA
     Route: 048
     Dates: start: 19970101, end: 20030322
  15. NAPROXEN [Concomitant]
     Indication: PAIN
     Route: 048
     Dates: start: 19970101, end: 20030322
  16. MS CONTIN [Concomitant]
     Indication: PAIN
     Route: 048
     Dates: start: 19970101, end: 20030322

REACTIONS (5)
  - CARDIAC DISORDER [None]
  - GALLBLADDER DISORDER [None]
  - MYOCARDIAL INFARCTION [None]
  - OVERDOSE [None]
  - RENAL DISORDER [None]
